FAERS Safety Report 5093448-6 (Version None)
Quarter: 2006Q3

REPORT INFORMATION
  Report Type: 
  Country: None (occurrence: None)
  Receive Date: 20060828
  Receipt Date: 20060808
  Transmission Date: 20061208
  Serious: Yes (Hospitalization)
  Sender: FDA-Public Use
  Company Number: T06-CAN-03124-01

PATIENT
  Age: 57 Year
  Sex: Male

DRUGS (6)
  1. ESCITALOPRAM [Suspect]
     Indication: DEPRESSION
     Dates: start: 20060119
  2. NORFLOXACIN [Concomitant]
  3. PERCOCET [Concomitant]
  4. LEVAQUIN [Concomitant]
  5. SEPTRA DS [Concomitant]
  6. TYLENOL EXTRA STRENGTH [Concomitant]

REACTIONS (1)
  - RENAL CELL CARCINOMA STAGE UNSPECIFIED [None]
